FAERS Safety Report 14413399 (Version 3)
Quarter: 2018Q1

REPORT INFORMATION
  Report Type: Report from Study
  Country: CZ (occurrence: CZ)
  Receive Date: 20180119
  Receipt Date: 20180328
  Transmission Date: 20180509
  Serious: Yes (Hospitalization)
  Sender: FDA-Public Use
  Company Number: CZ-TAKEDA-2018TUS001147

PATIENT
  Age: 67 Year
  Sex: Male
  Weight: 68 kg

DRUGS (18)
  1. AERIUS [Concomitant]
     Active Substance: DESLORATADINE
     Indication: PROPHYLAXIS
     Dosage: UNK
     Route: 048
     Dates: start: 20170526
  2. PREDNISON [Concomitant]
     Active Substance: PREDNISONE
     Indication: COLITIS ULCERATIVE
     Dosage: 20 ML, QD
     Route: 048
     Dates: start: 20170918
  3. PREDNISON [Concomitant]
     Active Substance: PREDNISONE
     Dosage: 10 MG, QD
     Route: 048
     Dates: start: 20170918
  4. DUODART [Concomitant]
     Active Substance: DUTASTERIDE\TAMSULOSIN
     Indication: BENIGN PROSTATIC HYPERPLASIA
     Dosage: UNK UNK, QD
     Route: 048
     Dates: start: 2000
  5. ENTEROL                            /00838001/ [Concomitant]
     Dosage: 1500 MG, UNK
     Route: 048
     Dates: start: 20180105
  6. CLEXANE [Concomitant]
     Active Substance: ENOXAPARIN SODIUM
     Indication: VENOUS THROMBOSIS
     Dosage: 0.6 ML, QD
     Route: 058
     Dates: start: 20170918
  7. BETALOC                            /00376902/ [Concomitant]
     Active Substance: METOPROLOL TARTRATE
     Indication: HYPERTENSION
     Dosage: 50 MG, QD
     Route: 048
     Dates: start: 201802
  8. CALCICHEW [Concomitant]
     Active Substance: CALCIUM CARBONATE
     Indication: PROPHYLAXIS
     Dosage: UNK UNK, QD
     Route: 048
     Dates: start: 201802
  9. ASACOL [Concomitant]
     Active Substance: MESALAMINE
     Indication: COLITIS ULCERATIVE
     Dosage: 800 MG, QID
     Route: 048
     Dates: start: 1989
  10. ENTEROL                            /00838001/ [Concomitant]
     Indication: COLITIS ULCERATIVE
     Dosage: UNK UNK, QD
     Route: 048
     Dates: start: 20170811
  11. KALNORMIN [Concomitant]
     Active Substance: POTASSIUM CHLORIDE
     Indication: PROPHYLAXIS
     Dosage: UNK UNK, QD
     Route: 048
     Dates: start: 20170901
  12. TRITACE [Concomitant]
     Active Substance: RAMIPRIL
     Indication: HYPERTENSION
     Dosage: 2.5 MG, QD
     Route: 048
     Dates: start: 20170918
  13. ZOREM                              /00972402/ [Concomitant]
     Indication: HYPERTENSION
     Dosage: 5 MG, QD
     Route: 048
     Dates: start: 20170918
  14. VEDOLIZUMAB [Suspect]
     Active Substance: VEDOLIZUMAB
     Indication: PRODUCT USED FOR UNKNOWN INDICATION
     Dosage: 108 MG, 1/WEEK
     Route: 058
     Dates: start: 20170922, end: 20180105
  15. PARALEN                            /00020001/ [Concomitant]
     Indication: HEADACHE
     Dosage: 500 MG, UNK
     Route: 048
     Dates: start: 20170526
  16. HELICID                            /00661201/ [Concomitant]
     Indication: COLITIS ULCERATIVE
     Dosage: UNK UNK, QD
     Route: 048
     Dates: start: 20170901
  17. CLEXANE [Concomitant]
     Active Substance: ENOXAPARIN SODIUM
     Indication: THROMBOSIS PROPHYLAXIS
     Dosage: 0.4 ML, QD
     Route: 058
     Dates: start: 20180105
  18. ASENTRA [Concomitant]
     Active Substance: SERTRALINE HYDROCHLORIDE
     Indication: DEPRESSION
     Dosage: 50 MG, QD
     Route: 048
     Dates: start: 201802

REACTIONS (1)
  - Colitis ulcerative [Recovered/Resolved]

NARRATIVE: CASE EVENT DATE: 20180105
